FAERS Safety Report 8919411 (Version 7)
Quarter: 2013Q1

REPORT INFORMATION
  Report Type: Spontaneous
  Country: US (occurrence: US)
  Receive Date: 20121121
  Receipt Date: 20130329
  Transmission Date: 20140127
  Serious: Yes (Hospitalization, Other)
  Sender: FDA-Public Use
  Company Number: US-009507513-1211USA005995

PATIENT
  Age: 51 Year
  Sex: Female
  Weight: 94.33 kg

DRUGS (8)
  1. PEGINTRON [Suspect]
     Indication: HEPATITIS C
     Dosage: 150 MICROGRAM/0.5 ML WEEKLY
     Route: 058
     Dates: start: 20121025
  2. PEGINTRON [Suspect]
     Dosage: UNK
     Route: 048
     Dates: start: 20130226
  3. VICTRELIS [Suspect]
     Indication: HEPATITIS C
     Dosage: 800 MG, TID
     Route: 048
  4. VICTRELIS [Suspect]
     Dosage: UNK
     Route: 048
     Dates: start: 20130226
  5. RIBASPHERE [Suspect]
     Indication: HEPATITIS C
     Dosage: 600 MG,  QD
  6. RIBASPHERE [Suspect]
     Dosage: 400 MG
  7. RIBASPHERE [Suspect]
     Dosage: 600 MG, QD
  8. RIBASPHERE [Suspect]
     Dosage: UNK
     Route: 048
     Dates: start: 20130226

REACTIONS (7)
  - Anaemia [Recovered/Resolved]
  - Fatigue [Unknown]
  - Nausea [Not Recovered/Not Resolved]
  - Dyspnoea [Recovered/Resolved]
  - Influenza like illness [Not Recovered/Not Resolved]
  - Chest discomfort [Recovered/Resolved]
  - No therapeutic response [Unknown]
